FAERS Safety Report 15338946 (Version 1)
Quarter: 2018Q3

REPORT INFORMATION
  Report Type: Report from Study
  Country: CO (occurrence: CO)
  Receive Date: 20180831
  Receipt Date: 20180831
  Transmission Date: 20181010
  Serious: Yes (Hospitalization)
  Sender: FDA-Public Use
  Company Number: CO-ASTELLAS-2018US038638

PATIENT
  Age: 27 Year
  Sex: Female

DRUGS (1)
  1. TACROLIMUS. [Suspect]
     Active Substance: TACROLIMUS
     Indication: RENAL TRANSPLANT
     Dosage: 10 MG, ONCE DAILY (2 CAPSULE OF 5 MG)
     Route: 048
     Dates: start: 20180602

REACTIONS (2)
  - Blood creatinine increased [Recovering/Resolving]
  - Antibody test abnormal [Recovering/Resolving]

NARRATIVE: CASE EVENT DATE: 20180808
